FAERS Safety Report 4598612-8 (Version None)
Quarter: 2005Q1

REPORT INFORMATION
  Report Type: 
  Country: None (occurrence: None)
  Receive Date: 20050304
  Receipt Date: 20050221
  Transmission Date: 20050727
  Serious: Yes (Hospitalization)
  Sender: FDA-Public Use
  Company Number: BR-ROCHE-396448

PATIENT
  Age: 11 Year
  Sex: Female

DRUGS (2)
  1. ROCEPHIN [Suspect]
     Indication: TONSILLITIS
     Dosage: ROUTE IM.
     Route: 030
     Dates: start: 20050217, end: 20050219
  2. ROCEPHIN [Suspect]
     Dosage: ROUTE IV.
     Route: 030
     Dates: start: 20050220, end: 20050220

REACTIONS (1)
  - ENCEPHALITIS [None]
